FAERS Safety Report 20289366 (Version 1)
Quarter: 2022Q1

REPORT INFORMATION
  Report Type: Spontaneous
  Country: CA (occurrence: CA)
  Receive Date: 20220104
  Receipt Date: 20220104
  Transmission Date: 20220424
  Serious: Yes (Hospitalization, Other)
  Sender: FDA-Public Use
  Company Number: CA-VALIDUS PHARMACEUTICALS LLC-CA-VDP-2021-014848

PATIENT

DRUGS (1)
  1. FUROSEMIDE [Suspect]
     Active Substance: FUROSEMIDE
     Indication: Cardiac failure congestive
     Dosage: 40 MILLIGRAM
     Route: 065

REACTIONS (6)
  - Asthenia [Unknown]
  - Atrioventricular block second degree [Unknown]
  - Urine output decreased [Unknown]
  - Sinus bradycardia [Unknown]
  - Hypokalaemia [Unknown]
  - Dizziness [Unknown]
